FAERS Safety Report 5147734-1 (Version None)
Quarter: 2006Q4

REPORT INFORMATION
  Report Type: 
  Country: None (occurrence: None)
  Receive Date: 20061110
  Receipt Date: 20061106
  Transmission Date: 20070319
  Serious: Yes (Death, Other)
  Sender: FDA-Public Use
  Company Number: PHBS2006JP17245

PATIENT
  Age: 68 Year
  Sex: Male

DRUGS (1)
  1. TEGRETOL [Suspect]
     Route: 048
     Dates: start: 20041101, end: 20041201

REACTIONS (2)
  - DRUG HYPERSENSITIVITY [None]
  - SEPSIS [None]
